FAERS Safety Report 11337219 (Version 2)
Quarter: 2015Q3

REPORT INFORMATION
  Report Type: Spontaneous
  Country: US (occurrence: US)
  Receive Date: 20150804
  Receipt Date: 20150828
  Transmission Date: 20151125
  Serious: Yes (Hospitalization)
  Sender: FDA-Public Use
  Company Number: US-CELGENEUS-USA-2015065912

PATIENT
  Age: 22 Year
  Sex: Female

DRUGS (2)
  1. OTEZLA [Suspect]
     Active Substance: APREMILAST
     Indication: PSORIASIS
     Dosage: 10/20/30MG
     Route: 048
     Dates: start: 20150605, end: 20150608
  2. OTEZLA [Suspect]
     Active Substance: APREMILAST
     Dosage: 10/20/30MG
     Route: 048
     Dates: start: 201507, end: 201507

REACTIONS (3)
  - Nausea [Unknown]
  - Diarrhoea haemorrhagic [Recovered/Resolved]
  - Vomiting [Unknown]

NARRATIVE: CASE EVENT DATE: 20150607
